FAERS Safety Report 21682765 (Version 1)
Quarter: 2022Q4

REPORT INFORMATION
  Report Type: Spontaneous
  Country: CA (occurrence: None)
  Receive Date: 20221205
  Receipt Date: 20221205
  Transmission Date: 20230113
  Serious: Yes (Death, Other)
  Sender: FDA-Public Use
  Company Number: 2022A396592

PATIENT
  Age: 24 Year
  Sex: Male

DRUGS (12)
  1. QUETIAPINE [Suspect]
     Active Substance: QUETIAPINE
     Indication: Insomnia
     Dosage: 100.0MG UNKNOWN
     Route: 048
  2. QUETIAPINE [Suspect]
     Active Substance: QUETIAPINE
     Indication: Insomnia
     Dosage: 100.0MG UNKNOWN
     Route: 048
  3. ABILIFY MAINTENA [Suspect]
     Active Substance: ARIPIPRAZOLE
     Indication: Psychotic symptom
     Route: 030
  4. OLANZAPINE [Suspect]
     Active Substance: OLANZAPINE
     Indication: Psychotic symptom
     Route: 065
  5. OLANZAPINE [Suspect]
     Active Substance: OLANZAPINE
     Indication: Product used for unknown indication
     Route: 065
  6. OLANZAPINE [Suspect]
     Active Substance: OLANZAPINE
     Indication: Psychotic symptom
     Route: 065
  7. OLANZAPINE [Suspect]
     Active Substance: OLANZAPINE
     Indication: Product used for unknown indication
     Route: 065
  8. ZUCLOPENTHIXOL ACETATE [Suspect]
     Active Substance: ZUCLOPENTHIXOL ACETATE
     Indication: Psychiatric decompensation
     Route: 065
  9. ZUCLOPENTHIXOL ACETATE [Suspect]
     Active Substance: ZUCLOPENTHIXOL ACETATE
     Indication: Mental disorder
     Route: 065
  10. ZUCLOPENTHIXOL ACETATE [Suspect]
     Active Substance: ZUCLOPENTHIXOL ACETATE
     Indication: Psychiatric decompensation
     Route: 030
  11. ZUCLOPENTHIXOL ACETATE [Suspect]
     Active Substance: ZUCLOPENTHIXOL ACETATE
     Indication: Mental disorder
     Route: 030
  12. LORAZEPAM [Concomitant]
     Active Substance: LORAZEPAM
     Indication: Product used for unknown indication
     Route: 065

REACTIONS (17)
  - Accidental death [Fatal]
  - Acute pulmonary oedema [Fatal]
  - Agitation [Fatal]
  - Antipsychotic drug level decreased [Fatal]
  - Arrhythmia [Fatal]
  - Cardiac failure [Fatal]
  - Iatrogenic injury [Fatal]
  - Paradoxical drug reaction [Fatal]
  - Psychotic disorder [Fatal]
  - Ventricular arrhythmia [Fatal]
  - Prescribed overdose [Fatal]
  - Product dose omission issue [Fatal]
  - Therapeutic product effect incomplete [Fatal]
  - Anxiolytic therapy [Fatal]
  - Drug therapy enhancement [Fatal]
  - Inappropriate schedule of product administration [Fatal]
  - Multiple drug therapy [Fatal]
